FAERS Safety Report 11361987 (Version 1)
Quarter: 2015Q3

REPORT INFORMATION
  Report Type: Spontaneous
  Country: GB (occurrence: GB)
  Receive Date: 20150810
  Receipt Date: 20150810
  Transmission Date: 20151125
  Serious: Yes (Other)
  Sender: FDA-Public Use
  Company Number: GB-JNJFOC-20150803583

PATIENT
  Age: 42 Year
  Sex: Female
  Weight: 67 kg

DRUGS (14)
  1. AMITRIPTYLINE HYDROCHLORIDE. [Concomitant]
     Active Substance: AMITRIPTYLINE HYDROCHLORIDE
     Dosage: AT NIGHT, CUMULATIVE DOSE TO FIRST REACTION:225.916666 (UNIT NOT REPORTED)
     Route: 065
     Dates: start: 20141217
  2. HYOSCINE BUTYLBROMIDE [Concomitant]
     Active Substance: BUTYLSCOPOLAMINE
     Dosage: 1-2 FOUR TIMES DAILY, WHEN REQUIRED
     Route: 065
     Dates: start: 20120903
  3. PEPPERMINT OIL [Concomitant]
     Active Substance: PEPPERMINT OIL
     Dosage: CUMULATIVE DOSE TO FIRST REACTION: 5688.0
     Route: 065
     Dates: start: 20120903
  4. ZOLMITRIPTAN. [Concomitant]
     Active Substance: ZOLMITRIPTAN
     Dosage: ONE SPRAY AS DIRECTED
     Route: 065
     Dates: start: 20120903
  5. CLENIL MODULITE [Concomitant]
     Active Substance: BECLOMETHASONE DIPROPIONATE
     Dosage: MULATIVE DOSE TO FIRST REACTION: 3792.0 (UNIT NOT REPORTED)
     Route: 065
     Dates: start: 20120903
  6. BECONASE AQ [Concomitant]
     Active Substance: BECLOMETHASONE DIPROPIONATE MONOHYDRATE
     Dosage: AS DIRECTED
     Route: 065
     Dates: start: 20120903
  7. FEXOFENADINE [Concomitant]
     Active Substance: FEXOFENADINE\FEXOFENADINE HYDROCHLORIDE
     Dosage: CUMULATIVE DOSE TO FIRST REACTION: 948.0 (UNIT NOT REPORTED)
     Route: 065
     Dates: start: 20120903
  8. IBUPROFEN. [Suspect]
     Active Substance: IBUPROFEN
     Route: 065
  9. IBUPROFEN. [Suspect]
     Active Substance: IBUPROFEN
     Indication: PRODUCT USED FOR UNKNOWN INDICATION
     Route: 065
     Dates: start: 20150409
  10. PARACETAMOL [Concomitant]
     Active Substance: ACETAMINOPHEN
     Dosage: 4 TIMES A DAY AS REQUIRED
     Route: 065
     Dates: start: 20120903
  11. DOMPERIDONE [Concomitant]
     Active Substance: DOMPERIDONE
     Dosage: CUMULATIVE DOSE TO FIRST REACTION: 68.875 (UNIT NOT REPORTED)
     Route: 065
     Dates: start: 20150317, end: 20150324
  12. SALMETEROL [Concomitant]
     Active Substance: SALMETEROL
     Dosage: CUMULATIVE DOSE TO FIRST REACTION: 3792.0 (UNIT NOT REPORTED)
     Route: 065
     Dates: start: 20120903
  13. VENTOLIN [Concomitant]
     Active Substance: ALBUTEROL SULFATE
     Route: 065
     Dates: start: 20120903
  14. CINNARIZINE [Concomitant]
     Active Substance: CINNARIZINE
     Dosage: CUMULATIVE DOSE TO FIRST REACTION: 2844.0 (UNIT NOT REPORTED)
     Route: 065
     Dates: start: 20120903

REACTIONS (2)
  - Bronchospasm [Recovered/Resolved]
  - Dyspnoea [Recovered/Resolved]

NARRATIVE: CASE EVENT DATE: 20150409
